FAERS Safety Report 15814244 (Version 1)
Quarter: 2019Q1

REPORT INFORMATION
  Report Type: Spontaneous
  Country: GB (occurrence: GB)
  Receive Date: 20190111
  Receipt Date: 20190111
  Transmission Date: 20190417
  Serious: Yes (Life-Threatening, Other)
  Sender: FDA-Public Use
  Company Number: PHHY2019GB004725

PATIENT
  Age: 5 Month
  Sex: Female
  Weight: 5.3 kg

DRUGS (1)
  1. IOPIDINE [Suspect]
     Active Substance: APRACLONIDINE HYDROCHLORIDE
     Indication: OPHTHALMOLOGICAL EXAMINATION
     Dosage: 4 DROPS, TWO IN EACH EYE
     Route: 047
     Dates: start: 20181212, end: 20181212

REACTIONS (6)
  - Apnoea [Unknown]
  - Pallor [Unknown]
  - Circulatory collapse [Recovered/Resolved]
  - Contraindicated product administered [Unknown]
  - Hypoxia [Unknown]
  - Bradycardia [Unknown]

NARRATIVE: CASE EVENT DATE: 20181212
